FAERS Safety Report 13589699 (Version 1)
Quarter: 2017Q2

REPORT INFORMATION
  Report Type: Spontaneous
  Country: US (occurrence: US)
  Receive Date: 20170527
  Receipt Date: 20170527
  Transmission Date: 20170830
  Serious: Yes (Disabling)
  Sender: FDA-Public Use
  Company Number: None

PATIENT
  Age: 65 Year
  Sex: Female
  Weight: 58.5 kg

DRUGS (8)
  1. LEVOTHYROXINE. [Concomitant]
     Active Substance: LEVOTHYROXINE
  2. EZETIMIBE. [Concomitant]
     Active Substance: EZETIMIBE
  3. TRINTELLIX [Suspect]
     Active Substance: VORTIOXETINE HYDROBROMIDE
     Indication: DEPRESSION
     Dosage: ?          QUANTITY:1 TABLET(S);?
     Route: 048
     Dates: start: 20170514, end: 20170527
  4. PREVASTATIN SODIUM TABLETS [Concomitant]
  5. ZOLPIDEM TARTRATE EXTENDED RELEASE [Concomitant]
     Active Substance: ZOLPIDEM TARTRATE
  6. HERBAL GREEN TEA [Concomitant]
  7. LORAZEPAM. [Concomitant]
     Active Substance: LORAZEPAM
  8. WOMEN^S OVER-50 MULTI-VITAMIN [Concomitant]

REACTIONS (16)
  - Mania [None]
  - Nausea [None]
  - Muscle spasms [None]
  - Labelled drug-drug interaction medication error [None]
  - Myalgia [None]
  - Hypertension [None]
  - Ocular discomfort [None]
  - Abdominal pain upper [None]
  - Withdrawal syndrome [None]
  - Diarrhoea [None]
  - Dysgeusia [None]
  - Nightmare [None]
  - Feeding disorder [None]
  - Dehydration [None]
  - Feeling abnormal [None]
  - Anxiety [None]

NARRATIVE: CASE EVENT DATE: 20170516
